FAERS Safety Report 4415058-3 (Version None)
Quarter: 2004Q3

REPORT INFORMATION
  Report Type: 
  Country: None (occurrence: None)
  Receive Date: 20040803
  Receipt Date: 20040803
  Transmission Date: 20050211
  Serious: Yes (Other)
  Sender: FDA-Public Use
  Company Number: None

PATIENT
  Sex: Male
  Weight: 86.1834 kg

DRUGS (3)
  1. PRIMAXIN [Suspect]
     Indication: ULCER
     Dosage: 500 MG IV Q 12 H
     Route: 042
     Dates: start: 20040706, end: 20040803
  2. PRIMAXIN [Suspect]
     Indication: WOUND
     Dosage: 500 MG IV Q 12 H
     Route: 042
     Dates: start: 20040706, end: 20040803
  3. CUBICIN [Suspect]
     Dosage: 250 MG IV Q 14 H
     Route: 042
     Dates: start: 20040708, end: 20040803

REACTIONS (2)
  - LOOSE STOOLS [None]
  - RASH [None]
